FAERS Safety Report 18411602 (Version 1)
Quarter: 2020Q4

REPORT INFORMATION
  Report Type: Spontaneous
  Country: AU (occurrence: AU)
  Receive Date: 20201021
  Receipt Date: 20201021
  Transmission Date: 20210114
  Serious: No
  Sender: FDA-Public Use
  Company Number: AU-LUPIN PHARMACEUTICALS INC.-2020-03981

PATIENT
  Sex: Male
  Weight: 3.33 kg

DRUGS (2)
  1. DESVENLAFAXINE. [Concomitant]
     Active Substance: DESVENLAFAXINE
     Indication: MAJOR DEPRESSION
     Dosage: 50 MILLIGRAM, QD (AT MORNING)
     Route: 063
  2. LURASIDONE [Suspect]
     Active Substance: LURASIDONE
     Indication: MAJOR DEPRESSION
     Dosage: 40 MILLIGRAM, QD (AT NIGHT)
     Route: 063

REACTIONS (1)
  - Maternal exposure during breast feeding [Unknown]
